FAERS Safety Report 21142401 (Version 1)
Quarter: 2022Q3

REPORT INFORMATION
  Report Type: Spontaneous
  Country: GB (occurrence: GB)
  Receive Date: 20220728
  Receipt Date: 20220728
  Transmission Date: 20221027
  Serious: Yes (Hospitalization, Other)
  Sender: FDA-Public Use
  Company Number: GB-SA-2022SA288402

PATIENT
  Sex: Male

DRUGS (25)
  1. CHOLECALCIFEROL [Suspect]
     Active Substance: CHOLECALCIFEROL
     Indication: Drug therapy
     Dosage: UNK UNK, QD
  2. ASCORBIC ACID [Suspect]
     Active Substance: ASCORBIC ACID
     Indication: Drug therapy
     Dosage: UNK UNK, QD
  3. FOLIC ACID [Suspect]
     Active Substance: FOLIC ACID
     Indication: Drug therapy
     Dosage: 1000 UG, QD
  4. RIBOFLAVIN [Suspect]
     Active Substance: RIBOFLAVIN
     Indication: Drug therapy
     Dosage: UNK
  5. SELENIUM SULFIDE [Suspect]
     Active Substance: SELENIUM SULFIDE
     Indication: Drug therapy
     Dosage: UNK UNK, QD
  6. VITAMIN B6 [Suspect]
     Active Substance: PYRIDOXINE HYDROCHLORIDE
     Indication: Drug therapy
     Dosage: UNK UNK, QD
  7. MENAQUINONE 6 [Suspect]
     Active Substance: MENAQUINONE 6
     Indication: Drug therapy
     Dosage: 100 UG, QD
  8. OMEGA-3 FATTY ACIDS [Suspect]
     Active Substance: OMEGA-3 FATTY ACIDS
     Indication: Drug therapy
     Dosage: 2000 MG, BID
  9. ZINC PICOLINATE [Suspect]
     Active Substance: ZINC PICOLINATE
     Indication: Drug therapy
     Dosage: 15 MG, QD
  10. VITAMIN B3 [Suspect]
     Active Substance: NIACIN
     Indication: Drug therapy
     Dosage: 50 MG, QD
  11. IODINE\POTASSIUM IODIDE [Suspect]
     Active Substance: IODINE\POTASSIUM IODIDE
     Indication: Drug therapy
     Dosage: UNK UNK, QD
  12. SODIUM BORATE [Suspect]
     Active Substance: SODIUM BORATE
     Indication: Drug therapy
     Dosage: UNK UNK, QD
  13. LYSINE [Suspect]
     Active Substance: LYSINE
     Indication: Drug therapy
     Dosage: 500 UG, QD
  14. ACETYLCYSTEINE [Suspect]
     Active Substance: ACETYLCYSTEINE
     Indication: Drug therapy
     Dosage: 600 MG, QD
  15. BROMELAINS\CHYMOTRYPSIN\LIPASE\PANCRELIPASE\PANCRELIPASE AMYLASE\PAPAI [Suspect]
     Active Substance: BROMELAINS\CHYMOTRYPSIN\LIPASE\PANCRELIPASE\PANCRELIPASE AMYLASE\PAPAIN\RUTIN\TRYPSIN
     Indication: Drug therapy
     Dosage: 400 UNK, QD
  16. ASTAXANTHIN [Suspect]
     Active Substance: ASTAXANTHIN
     Indication: Drug therapy
     Dosage: 18 MG, SOFT GEL
  17. MAGNESIUM MALATE [Suspect]
     Active Substance: MAGNESIUM MALATE
     Indication: Drug therapy
     Dosage: 1000 MG, QD
  18. MAGNESIUM CITRATE [Suspect]
     Active Substance: MAGNESIUM CITRATE
     Indication: Drug therapy
     Dosage: 1480 MG, QD
  19. TAURINE [Suspect]
     Active Substance: TAURINE
     Indication: Drug therapy
     Dosage: 1-2 G QD
  20. GLYCINE [Suspect]
     Active Substance: GLYCINE
     Indication: Drug therapy
     Dosage: 1 G, QD
  21. INOSITOL [Suspect]
     Active Substance: INOSITOL
     Indication: Drug therapy
     Dosage: 100 MG, QD
  22. CALCIUM OROTATE [Suspect]
     Active Substance: CALCIUM OROTATE
     Dosage: 1000 MG
  23. PROBIOTICS NOS [Suspect]
     Active Substance: PROBIOTICS NOS
     Indication: Drug therapy
     Dosage: UNK UNK, QD
  24. CHONDROITIN SULFATE (BOVINE)\GLUCOSAMINE HYDROCHLORIDE [Suspect]
     Active Substance: CHONDROITIN SULFATE (BOVINE)\GLUCOSAMINE HYDROCHLORIDE
     Indication: Drug therapy
     Dosage: UNK UNK, QD
  25. SODIUM CHLORIDE [Suspect]
     Active Substance: SODIUM CHLORIDE
     Indication: Drug therapy
     Dosage: UNK UNK, QD

REACTIONS (13)
  - Toxicity to various agents [Unknown]
  - Hypercalcaemia [Unknown]
  - Vomiting [Unknown]
  - Nausea [Unknown]
  - Abdominal pain [Unknown]
  - Muscle spasms [Unknown]
  - Tinnitus [Unknown]
  - Dry mouth [Unknown]
  - Thirst [Unknown]
  - Diarrhoea [Unknown]
  - Cachexia [Unknown]
  - Abdominal tenderness [Unknown]
  - Acute kidney injury [Unknown]
